FAERS Safety Report 9206958 (Version 3)
Quarter: 2013Q3

REPORT INFORMATION
  Report Type: Report from Study
  Country: JP (occurrence: JP)
  Receive Date: 20130403
  Receipt Date: 20130702
  Transmission Date: 20140515
  Serious: Yes (Other)
  Sender: FDA-Public Use
  Company Number: JP-PFIZER INC-2013103851

PATIENT
  Age: 77 Year
  Sex: Female
  Weight: 50.3 kg

DRUGS (8)
  1. SILDENAFIL CITRATE [Suspect]
     Indication: INTERSTITIAL LUNG DISEASE
     Dosage: 20 MG, 1X/DAY
     Route: 048
     Dates: start: 20120228, end: 20120423
  2. SILDENAFIL CITRATE [Suspect]
     Dosage: 20 MG, 2X/DAY
     Route: 048
     Dates: start: 20120424
  3. TRACLEER [Concomitant]
     Indication: PULMONARY HYPERTENSION
     Dosage: 62.5 MG, 2X/DAY
     Route: 048
     Dates: start: 20110107
  4. PIRFENIDONE [Concomitant]
     Indication: INTERSTITIAL LUNG DISEASE
     Dosage: 200 MG, 3X/DAY
     Route: 048
     Dates: start: 20101227
  5. PREDNISOLONE [Concomitant]
     Indication: INTERSTITIAL LUNG DISEASE
     Dosage: 7 MG, 1X/DAY
     Route: 048
     Dates: start: 20040317
  6. ALFAROL [Concomitant]
     Indication: OSTEOPOROSIS
     Dosage: 1.0 UG, 1X/DAY
     Route: 048
     Dates: start: 20050401
  7. PARIET [Concomitant]
     Indication: GASTROOESOPHAGEAL REFLUX DISEASE
     Dosage: 10 MG, 1X/DAY
     Route: 048
     Dates: start: 20100105
  8. GLAKAY [Concomitant]
     Indication: OSTEOPOROSIS
     Dosage: 15 MG, 3X/DAY
     Route: 048
     Dates: start: 20100827

REACTIONS (1)
  - Interstitial lung disease [Not Recovered/Not Resolved]
